FAERS Safety Report 8059749-4 (Version None)
Quarter: 2012Q1

REPORT INFORMATION
  Report Type: 
  Country: None (occurrence: None)
  Receive Date: 20120119
  Receipt Date: 20120119
  Transmission Date: 20120608
  Serious: Yes (Hospitalization)
  Sender: FDA-Public Use
  Company Number: None

PATIENT
  Age: 45 Year
  Sex: Female
  Weight: 63.7 kg

DRUGS (7)
  1. LOVENOX [Suspect]
     Indication: LAPAROSCOPIC SURGERY
     Dosage: 60MG BID IV RECENT
     Route: 042
  2. KEPPRA [Concomitant]
  3. IRON [Concomitant]
  4. NORCO [Concomitant]
  5. M.V.I. [Concomitant]
  6. WARFARIN SODIUM [Suspect]
     Indication: LAPAROSCOPIC SURGERY
     Dosage: 10MG DAILY PO RECENT
     Route: 048
  7. THYROID TAB [Concomitant]

REACTIONS (5)
  - ABDOMINAL PAIN LOWER [None]
  - FULL BLOOD COUNT ABNORMAL [None]
  - SUPRAPUBIC PAIN [None]
  - INTERNATIONAL NORMALISED RATIO INCREASED [None]
  - POST PROCEDURAL HAEMATOMA [None]
